FAERS Safety Report 5131392-6 (Version None)
Quarter: 2006Q4

REPORT INFORMATION
  Report Type: 
  Country: None (occurrence: None)
  Receive Date: 20061020
  Receipt Date: 20061017
  Transmission Date: 20070319
  Serious: Yes (Other)
  Sender: FDA-Public Use
  Company Number: US-GLAXOSMITHKLINE-A0623923A

PATIENT
  Age: 45 Year
  Sex: Female

DRUGS (2)
  1. LAMICTAL [Suspect]
     Dosage: 200MG TWICE PER DAY
     Route: 048
     Dates: start: 20060501
  2. NO CONCURRENT MEDICATION [Concomitant]

REACTIONS (30)
  - BLOOD UREA NITROGEN/CREATININE RATIO INCREASED [None]
  - CHILLS [None]
  - CONSTIPATION [None]
  - COUGH [None]
  - CYSTITIS [None]
  - DRY EYE [None]
  - DYSURIA [None]
  - EAR PAIN [None]
  - FATIGUE [None]
  - HERPES SIMPLEX [None]
  - HICCUPS [None]
  - HOT FLUSH [None]
  - MENORRHAGIA [None]
  - MICTURITION URGENCY [None]
  - MOVEMENT DISORDER [None]
  - MUSCLE SPASMS [None]
  - NEUROPATHY PERIPHERAL [None]
  - NOCTURIA [None]
  - POLYURIA [None]
  - SLEEP DISORDER [None]
  - THINKING ABNORMAL [None]
  - THIRST [None]
  - TINNITUS [None]
  - URINARY INCONTINENCE [None]
  - URINARY RETENTION [None]
  - URTICARIA [None]
  - VISUAL FIELD DEFECT [None]
  - VOMITING [None]
  - VULVOVAGINAL MYCOTIC INFECTION [None]
  - YAWNING [None]
